FAERS Safety Report 6206710-8 (Version None)
Quarter: 2009Q2

REPORT INFORMATION
  Report Type: 
  Country: None (occurrence: None)
  Receive Date: 20090528
  Receipt Date: 20090520
  Transmission Date: 20091009
  Serious: Yes (Death)
  Sender: FDA-Public Use
  Company Number: FR-ELI_LILLY_AND_COMPANY-FR200905004094

PATIENT
  Age: 78 Year
  Sex: Female

DRUGS (4)
  1. FORTEO [Suspect]
     Indication: OSTEOPOROSIS
     Dosage: 20 UG, DAILY (1/D)
     Route: 058
     Dates: start: 20090401
  2. LASIX [Concomitant]
     Indication: RENAL FAILURE
     Dosage: 30 MG, DAILY (1/D)
     Route: 048
  3. CARDENSIEL [Concomitant]
     Indication: CARDIAC FAILURE
     Dosage: 7.5 MG, DAILY (1/D)
     Route: 048
  4. CAPTOPRIL [Concomitant]
     Indication: CARDIAC FAILURE
     Dosage: 150 MG, DAILY (1/D)
     Route: 048

REACTIONS (1)
  - SUDDEN DEATH [None]
